FAERS Safety Report 6532327-1 (Version None)
Quarter: 2010Q1

REPORT INFORMATION
  Report Type: 
  Country: None (occurrence: None)
  Receive Date: 20100108
  Receipt Date: 20100107
  Transmission Date: 20100710
  Serious: Yes (Death)
  Sender: FDA-Public Use
  Company Number: US-GILEAD-2010-0026344

PATIENT
  Sex: Female

DRUGS (13)
  1. LETAIRIS [Suspect]
     Indication: PULMONARY ARTERIAL HYPERTENSION
     Route: 048
  2. DEMADEX [Concomitant]
  3. ZOCOR [Concomitant]
  4. PROTONIX [Concomitant]
  5. ALDACTONE [Concomitant]
  6. COUMADIN [Concomitant]
  7. SYNTHROID [Concomitant]
  8. K-DUR [Concomitant]
  9. TOPROL-XL [Concomitant]
  10. CELEXA [Concomitant]
  11. MAG [Concomitant]
  12. ZAROXOL [Concomitant]
  13. OSCAL [Concomitant]

REACTIONS (1)
  - DEATH [None]
